FAERS Safety Report 24565842 (Version 1)
Quarter: 2024Q4

REPORT INFORMATION
  Report Type: Spontaneous
  Country: US (occurrence: US)
  Receive Date: 20241030
  Receipt Date: 20241030
  Transmission Date: 20250115
  Serious: No
  Sender: INSUD PHARMA
  Company Number: US-INSUD PHARMA-2410US07878

PATIENT

DRUGS (2)
  1. SLYND [Suspect]
     Active Substance: DROSPIRENONE
     Indication: Menstrual cycle management
     Dosage: UNK
     Route: 048
     Dates: start: 202405
  2. SLYND [Suspect]
     Active Substance: DROSPIRENONE
     Indication: Anaemia

REACTIONS (3)
  - Menstrual clots [Not Recovered/Not Resolved]
  - Product prescribing issue [Unknown]
  - Intentional dose omission [Unknown]

NARRATIVE: CASE EVENT DATE: 20240501
